FAERS Safety Report 7551385-9 (Version None)
Quarter: 2011Q2

REPORT INFORMATION
  Report Type: 
  Country: None (occurrence: None)
  Receive Date: 20110616
  Receipt Date: 20110214
  Transmission Date: 20111010
  Serious: Yes (Hospitalization, Other)
  Sender: FDA-Public Use
  Company Number: AU-ROCHE-759988

PATIENT
  Sex: Female

DRUGS (3)
  1. DEXAMETHASONE [Suspect]
     Route: 065
  2. DOCETAXEL [Suspect]
     Route: 042
     Dates: start: 20100906
  3. GRANISETRON HCL [Suspect]
     Route: 065
     Dates: start: 20100906

REACTIONS (4)
  - FEBRILE NEUTROPENIA [None]
  - RASH [None]
  - HYPERSENSITIVITY [None]
  - PRESYNCOPE [None]
